FAERS Safety Report 8094098-X (Version None)
Quarter: 2012Q1

REPORT INFORMATION
  Report Type: 
  Country: None (occurrence: None)
  Receive Date: 20120131
  Receipt Date: 20120117
  Transmission Date: 20120608
  Serious: Yes (Other)
  Sender: FDA-Public Use
  Company Number: PHHY2012JP004582

PATIENT

DRUGS (1)
  1. DESFERAL [Suspect]
     Route: 030

REACTIONS (1)
  - RETINAL DISORDER [None]
